FAERS Safety Report 4643014-9 (Version None)
Quarter: 2005Q2

REPORT INFORMATION
  Report Type: 
  Country: None (occurrence: None)
  Receive Date: 20050421
  Receipt Date: 20050415
  Transmission Date: 20051028
  Serious: Yes (Death)
  Sender: FDA-Public Use
  Company Number: GBR-2005-0001656

PATIENT
  Age: 71 Year
  Sex: Female

DRUGS (7)
  1. PALLADONE [Suspect]
     Dosage: 8 MG, BID, ORAL
     Route: 048
     Dates: start: 20050323, end: 20050331
  2. DURAGESIC [Concomitant]
  3. MORPHINE SULFATE [Concomitant]
  4. CORDARONE [Concomitant]
  5. LYPRALEXA [Concomitant]
  6. ROMERGAN (PROMETHAZINE HYDROCHLORIDE) [Concomitant]
  7. AKTON (CLOXAZOLAM) [Concomitant]

REACTIONS (1)
  - CHRONIC OBSTRUCTIVE AIRWAYS DISEASE EXACERBATED [None]
